FAERS Safety Report 21335268 (Version 1)
Quarter: 2022Q3

REPORT INFORMATION
  Report Type: Spontaneous
  Country: GB (occurrence: GB)
  Receive Date: 20220915
  Receipt Date: 20220915
  Transmission Date: 20221027
  Serious: Yes (Death, Other)
  Sender: FDA-Public Use
  Company Number: GB-009507513-2209GBR004711

PATIENT
  Age: 57 Year
  Sex: Male

DRUGS (127)
  1. ISENTRESS [Suspect]
     Active Substance: RALTEGRAVIR POTASSIUM
     Indication: Product used for unknown indication
     Dosage: 400 MILLIGRAM, QD(400 MILLIGRAM, QD)
     Route: 048
  2. ISENTRESS [Suspect]
     Active Substance: RALTEGRAVIR POTASSIUM
     Indication: Product used for unknown indication
     Dosage: 2 DOSAGE FORM, QD(1 DOSAGE FORM, BID )
     Route: 048
  3. ISENTRESS [Suspect]
     Active Substance: RALTEGRAVIR POTASSIUM
     Dosage: UNK, BID(UNK UNK, BID)
     Route: 048
  4. ISENTRESS [Suspect]
     Active Substance: RALTEGRAVIR POTASSIUM
     Dosage: 1 DF, 2X/DAY (ONCE A DAY, BID)
     Route: 048
  5. ISENTRESS [Suspect]
     Active Substance: RALTEGRAVIR POTASSIUM
     Dosage: 2X/DAY
     Route: 048
  6. ISENTRESS [Suspect]
     Active Substance: RALTEGRAVIR POTASSIUM
     Dosage: 400 MILLIGRAM ONCE A DAY, BID
     Route: 048
  7. ISENTRESS [Suspect]
     Active Substance: RALTEGRAVIR POTASSIUM
     Dosage: UNK, QD (STRENGTH: 400 MG)
  8. ISENTRESS [Suspect]
     Active Substance: RALTEGRAVIR POTASSIUM
     Dosage: 400 MG
  9. ISENTRESS [Suspect]
     Active Substance: RALTEGRAVIR POTASSIUM
     Dosage: UNK, ONCE A DAY, BID
  10. ISENTRESS [Suspect]
     Active Substance: RALTEGRAVIR POTASSIUM
     Dosage: 1 DOSAGE FORM, BID ( (ONCE A DAY, BID)
  11. ISENTRESS [Suspect]
     Active Substance: RALTEGRAVIR POTASSIUM
     Dosage: 400 MILLIGRAM
     Route: 048
  12. ISENTRESS [Suspect]
     Active Substance: RALTEGRAVIR POTASSIUM
     Dosage: 400 MILLIGRAM, QD
  13. ISENTRESS [Suspect]
     Active Substance: RALTEGRAVIR POTASSIUM
     Dosage: 400 MILLIGRAM, QD
     Route: 048
  14. ISENTRESS [Suspect]
     Active Substance: RALTEGRAVIR POTASSIUM
     Dosage: 2 DOSAGE FORM, QD
  15. ISENTRESS [Suspect]
     Active Substance: RALTEGRAVIR POTASSIUM
     Dosage: 1 DOSAGE FORM, BID (1 DF, 2X/DAY (ONCE A DAY, BID) )
  16. ISENTRESS [Suspect]
     Active Substance: RALTEGRAVIR POTASSIUM
     Dosage: UNK, BID, (2X/DAY)
  17. ISENTRESS [Suspect]
     Active Substance: RALTEGRAVIR POTASSIUM
     Dosage: 400 MG, BID
     Route: 065
  18. ISENTRESS [Suspect]
     Active Substance: RALTEGRAVIR POTASSIUM
     Dosage: 400 MILLIGRAM, QD
     Route: 048
  19. ISENTRESS [Suspect]
     Active Substance: RALTEGRAVIR POTASSIUM
     Dosage: 400 MG, QD
     Route: 048
  20. ISENTRESS [Suspect]
     Active Substance: RALTEGRAVIR POTASSIUM
     Dosage: 1 DF, 2X/DAY (ONCE A DAY, BID)
     Route: 065
  21. ISENTRESS [Suspect]
     Active Substance: RALTEGRAVIR POTASSIUM
     Dosage: UNK, ONCE A DAY, BID, FORMULATION: TABLET
     Route: 065
  22. ISENTRESS [Suspect]
     Active Substance: RALTEGRAVIR POTASSIUM
     Dosage: 400 MILLIGRAM, QD
     Route: 048
  23. ISENTRESS [Suspect]
     Active Substance: RALTEGRAVIR POTASSIUM
     Dosage: 400 MILLIGRAM, QD
     Route: 048
  24. ISENTRESS [Suspect]
     Active Substance: RALTEGRAVIR POTASSIUM
     Dosage: 400 MILLIGRAM, ONCE A DAY, FORMULATION: TABLET FORM
     Route: 048
  25. ISENTRESS [Suspect]
     Active Substance: RALTEGRAVIR POTASSIUM
     Dosage: 400 MILLIGRAM, QD
     Route: 048
  26. ISENTRESS [Suspect]
     Active Substance: RALTEGRAVIR POTASSIUM
     Dosage: 400 MILLIGRAM ONCE A DAY, BID
     Route: 048
  27. ACYCLOVIR [Suspect]
     Active Substance: ACYCLOVIR
     Indication: Product used for unknown indication
     Dosage: 400 MILLIGRAM, QD
     Route: 065
  28. ACYCLOVIR [Suspect]
     Active Substance: ACYCLOVIR
     Indication: Product used for unknown indication
     Dosage: UNK UNK, QD
  29. ACYCLOVIR [Suspect]
     Active Substance: ACYCLOVIR
     Dosage: BID (UNK, 2X/DAY)
  30. ACYCLOVIR [Suspect]
     Active Substance: ACYCLOVIR
     Dosage: UNK, QD (STRENGTH: 400 MG)
  31. ACYCLOVIR [Suspect]
     Active Substance: ACYCLOVIR
     Dosage: UNK UNK, BID
  32. ACYCLOVIR [Suspect]
     Active Substance: ACYCLOVIR
     Dosage: 400 MILLIGRAM, QD (400 MG, 1X/DAY)
  33. ACYCLOVIR [Suspect]
     Active Substance: ACYCLOVIR
     Dosage: 400 MG
     Route: 065
  34. ACYCLOVIR [Suspect]
     Active Substance: ACYCLOVIR
     Dosage: 400MG, BID
     Route: 065
  35. ACYCLOVIR [Suspect]
     Active Substance: ACYCLOVIR
     Dosage: 400 MG
     Route: 065
  36. ACYCLOVIR [Suspect]
     Active Substance: ACYCLOVIR
     Dosage: 400 MG, QD
     Route: 065
  37. ACYCLOVIR [Suspect]
     Active Substance: ACYCLOVIR
     Dosage: 400 MG
     Route: 065
  38. DARUNAVIR [Suspect]
     Active Substance: DARUNAVIR
     Indication: Product used for unknown indication
     Dosage: 600 MG, 1X/DAY
     Route: 065
  39. DARUNAVIR [Suspect]
     Active Substance: DARUNAVIR
     Indication: Product used for unknown indication
     Dosage: 600 MILLIGRAM, QD(STRENGTH: 600 MG )
  40. DARUNAVIR [Suspect]
     Active Substance: DARUNAVIR
     Dosage: 600 MILLIGRAM
  41. DARUNAVIR [Suspect]
     Active Substance: DARUNAVIR
     Dosage: UNK, 1X/DAY
  42. DARUNAVIR [Suspect]
     Active Substance: DARUNAVIR
     Dosage: 600 MILLIGRAM, QD
  43. DARUNAVIR [Suspect]
     Active Substance: DARUNAVIR
     Dosage: 600 MILLIGRAM, QD
     Route: 048
  44. DARUNAVIR [Suspect]
     Active Substance: DARUNAVIR
     Dosage: UNK, 2X/DAY
  45. DARUNAVIR [Suspect]
     Active Substance: DARUNAVIR
     Dosage: 600 MG, 1X/DAY
     Route: 065
  46. DARUNAVIR [Suspect]
     Active Substance: DARUNAVIR
     Dosage: 600 MILLIGRAM, QD
     Route: 065
  47. DARUNAVIR [Suspect]
     Active Substance: DARUNAVIR
     Dosage: UNK, 2X/DAY
     Route: 065
  48. DARUNAVIR [Suspect]
     Active Substance: DARUNAVIR
     Dosage: 600 MG, 1X/DAY
     Route: 065
  49. DARUNAVIR [Suspect]
     Active Substance: DARUNAVIR
     Dosage: 600 MG, BID
     Route: 065
  50. DARUNAVIR [Suspect]
     Active Substance: DARUNAVIR
     Dosage: UNK, 1X/DAY
     Route: 065
  51. DARUNAVIR [Suspect]
     Active Substance: DARUNAVIR
     Dosage: 600 MG, 1X/DAY
     Route: 065
  52. DARUNAVIR [Suspect]
     Active Substance: DARUNAVIR
     Dosage: 400 MILLIGRAM ONCE A DAY, BID
     Route: 048
  53. DARUNAVIR [Suspect]
     Active Substance: DARUNAVIR
     Dosage: 600 MG, 1X/DAY
     Route: 065
  54. LAMIVUDINE [Suspect]
     Active Substance: LAMIVUDINE
     Indication: Product used for unknown indication
     Dosage: 300 MG (150 MILLIGRAM, BID)
     Route: 065
  55. LAMIVUDINE [Suspect]
     Active Substance: LAMIVUDINE
     Indication: Product used for unknown indication
     Dosage: UNK UNK, QD
     Route: 065
  56. LAMIVUDINE [Suspect]
     Active Substance: LAMIVUDINE
     Dosage: UNK UNK BID
     Route: 065
  57. LAMIVUDINE [Suspect]
     Active Substance: LAMIVUDINE
     Dosage: 150 MILLIGRAM, QD(150 MILLIGRAM, QD)
  58. LAMIVUDINE [Suspect]
     Active Substance: LAMIVUDINE
     Dosage: 300 MILLIGRAM (UNK UNK, BID)
     Route: 065
  59. LAMIVUDINE [Suspect]
     Active Substance: LAMIVUDINE
     Dosage: BID ( 2X/DAY)
  60. LAMIVUDINE [Suspect]
     Active Substance: LAMIVUDINE
     Dosage: QD (1X/DAY)
  61. LAMIVUDINE [Suspect]
     Active Substance: LAMIVUDINE
     Dosage: 150 MILLIGRAM, BID
  62. LAMIVUDINE [Suspect]
     Active Substance: LAMIVUDINE
     Dosage: UNK, QD (STRENGTH: 150 MG)
  63. LAMIVUDINE [Suspect]
     Active Substance: LAMIVUDINE
     Dosage: 150 MILLIGRAM, BID
     Route: 065
  64. LAMIVUDINE [Suspect]
     Active Substance: LAMIVUDINE
     Dosage: 150 MILLIGRAM, BID
     Route: 065
  65. LAMIVUDINE [Suspect]
     Active Substance: LAMIVUDINE
     Dosage: 150 MG, QD
     Route: 065
  66. LAMIVUDINE [Suspect]
     Active Substance: LAMIVUDINE
     Dosage: 150 MILLIGRAM, BID
     Route: 065
  67. LAMIVUDINE [Suspect]
     Active Substance: LAMIVUDINE
     Dosage: 150 MILLIGRAM, BID
     Route: 065
  68. LAMIVUDINE [Suspect]
     Active Substance: LAMIVUDINE
     Dosage: 150 MILLIGRAM, BID
     Route: 065
  69. NORVIR [Suspect]
     Active Substance: RITONAVIR
     Indication: Product used for unknown indication
     Dosage: 200 MILLIGRAM, QD (100 MG, 2X/DAY)
     Route: 065
  70. NORVIR [Suspect]
     Active Substance: RITONAVIR
     Indication: Product used for unknown indication
     Dosage: UNK, QD
     Route: 065
  71. NORVIR [Suspect]
     Active Substance: RITONAVIR
     Dosage: 200 MILLIGRAM, QD (100 MILLIGRAM, BID (200 MILLIGRAM, ONCE A DAY)
     Route: 065
  72. NORVIR [Suspect]
     Active Substance: RITONAVIR
     Dosage: 200 MILLIGRAM, QD (200 MG, QD ONCE A DAY(100 MILLIGRAM, BID)
     Route: 065
  73. NORVIR [Suspect]
     Active Substance: RITONAVIR
     Dosage: 100 MILLIGRAM, QD (100 MG, 1X/DAY)
     Route: 065
  74. NORVIR [Suspect]
     Active Substance: RITONAVIR
     Dosage: 100 MILLIGRAM, BID
     Route: 065
  75. NORVIR [Suspect]
     Active Substance: RITONAVIR
     Dosage: 100 MILLIGRAM, ONCE A DAY (100 MILLIGRAM, BID)
     Route: 065
  76. NORVIR [Suspect]
     Active Substance: RITONAVIR
     Dosage: UNK, QD (STRENGTH: 100 MG)
  77. NORVIR [Suspect]
     Active Substance: RITONAVIR
     Dosage: 100 MILLIGRAM
  78. NORVIR [Suspect]
     Active Substance: RITONAVIR
     Dosage: UNK UNK, QD, (1X/DAY)
  79. NORVIR [Suspect]
     Active Substance: RITONAVIR
     Dosage: 200 MILLIGRAM, QD(STRENGTH: 100 MG, 200 MILLIGRAM, ONCE A DAY(100 MILLIGRAM, BID )
  80. NORVIR [Suspect]
     Active Substance: RITONAVIR
     Dosage: 200 MILLIGRAM, QD
  81. NORVIR [Suspect]
     Active Substance: RITONAVIR
     Dosage: 100 MILLIGRAM, ONCE A DAY(100 MILLIGRAM , BID)
     Route: 065
  82. NORVIR [Suspect]
     Active Substance: RITONAVIR
     Dosage: 100 MILLIGRAM, ONCE A DAY(100 MILLIGRAM , BID)
     Route: 065
  83. NORVIR [Suspect]
     Active Substance: RITONAVIR
     Dosage: 100 MILLIGRAM, BID
     Route: 065
  84. NORVIR [Suspect]
     Active Substance: RITONAVIR
     Dosage: 100 MG, 2X/DAY
     Route: 065
  85. NORVIR [Suspect]
     Active Substance: RITONAVIR
     Dosage: 100 MILLIGRAM, ONCE A DAY(100 MILLIGRAM , BID)
     Route: 065
  86. NORVIR [Suspect]
     Active Substance: RITONAVIR
     Dosage: 100 MILLIGRAM, BID
     Route: 065
  87. NORVIR [Suspect]
     Active Substance: RITONAVIR
     Dosage: 100 MILLIGRAM, BID
     Route: 065
  88. NORVIR [Suspect]
     Active Substance: RITONAVIR
     Dosage: 100 MILLIGRAM, ONCE A DAY
     Route: 065
  89. NORVIR [Suspect]
     Active Substance: RITONAVIR
     Dosage: 100 MILLIGRAM, BID
     Route: 065
  90. NORVIR [Suspect]
     Active Substance: RITONAVIR
     Dosage: 100 MILLIGRAM, BID
     Route: 065
  91. NORVIR [Suspect]
     Active Substance: RITONAVIR
     Dosage: 100 MILLIGRAM, ONCE A DAY(100 MILLIGRAM , BID)
     Route: 065
  92. PREZISTA [Suspect]
     Active Substance: DARUNAVIR ETHANOLATE
     Indication: Product used for unknown indication
     Dosage: 600 MILLIGRAM, QD
     Route: 065
  93. PREZISTA [Suspect]
     Active Substance: DARUNAVIR ETHANOLATE
     Indication: Product used for unknown indication
     Dosage: UNK, BID
     Route: 065
  94. PREZISTA [Suspect]
     Active Substance: DARUNAVIR ETHANOLATE
     Dosage: UNK, QD (STRENGTH: 600 MG)
     Route: 065
  95. PREZISTA [Suspect]
     Active Substance: DARUNAVIR ETHANOLATE
     Dosage: 600 MILLIGRAM
  96. PREZISTA [Suspect]
     Active Substance: DARUNAVIR ETHANOLATE
     Dosage: QD (UNK, 1X/DAY)
  97. PREZISTA [Suspect]
     Active Substance: DARUNAVIR ETHANOLATE
     Dosage: BID (2X/DAY)
  98. PREZISTA [Suspect]
     Active Substance: DARUNAVIR ETHANOLATE
     Dosage: UNK, BID
  99. PREZISTA [Suspect]
     Active Substance: DARUNAVIR ETHANOLATE
     Dosage: UNK, QD
  100. PREZISTA [Suspect]
     Active Substance: DARUNAVIR ETHANOLATE
     Dosage: 600 MILLIGRAM, QD (600 MG, 1X/DAY)
     Route: 048
  101. PREZISTA [Suspect]
     Active Substance: DARUNAVIR ETHANOLATE
     Dosage: 600 MG, BID
     Route: 065
  102. PREZISTA [Suspect]
     Active Substance: DARUNAVIR ETHANOLATE
     Dosage: 600 MILLIGRAM, QD
     Route: 065
  103. PREZISTA [Suspect]
     Active Substance: DARUNAVIR ETHANOLATE
     Dosage: 600 MG, QD
     Route: 048
  104. PREZISTA [Suspect]
     Active Substance: DARUNAVIR ETHANOLATE
     Dosage: 600 MILLIGRAM, QD
     Route: 065
  105. TENOFOVIR DISOPROXIL [Suspect]
     Active Substance: TENOFOVIR DISOPROXIL
     Indication: Product used for unknown indication
     Dosage: 245 MILLIGRAM, QD(STRENGTH: 245 MG)
     Route: 065
  106. TENOFOVIR DISOPROXIL [Suspect]
     Active Substance: TENOFOVIR DISOPROXIL
     Indication: Product used for unknown indication
     Dosage: 150 MILLIGRAM, QD(150 MILLIGRAM, QD)
     Route: 065
  107. TENOFOVIR DISOPROXIL [Suspect]
     Active Substance: TENOFOVIR DISOPROXIL
     Dosage: UNK, QD (STRENGTH: 245 MG)
  108. TENOFOVIR DISOPROXIL [Suspect]
     Active Substance: TENOFOVIR DISOPROXIL
     Dosage: 245 MILLIGRAM
  109. TENOFOVIR DISOPROXIL [Suspect]
     Active Substance: TENOFOVIR DISOPROXIL
     Dosage: 150 MILLIGRAM, QD(STRENGTH: 245 MG
  110. TENOFOVIR DISOPROXIL [Suspect]
     Active Substance: TENOFOVIR DISOPROXIL
     Dosage: 150 MILLIGRAM, QD
  111. TENOFOVIR DISOPROXIL [Suspect]
     Active Substance: TENOFOVIR DISOPROXIL
     Dosage: 245 MILLIGRAM, QD (245 MG, 1X/DAY)
  112. TENOFOVIR DISOPROXIL [Suspect]
     Active Substance: TENOFOVIR DISOPROXIL
     Dosage: 245 MILLIGRAM, QD(245 MILLIGRAM, QD)
  113. TENOFOVIR DISOPROXIL [Suspect]
     Active Substance: TENOFOVIR DISOPROXIL
     Dosage: UNK, QD
  114. TENOFOVIR DISOPROXIL [Suspect]
     Active Substance: TENOFOVIR DISOPROXIL
     Dosage: 245 MILLIGRAM, QD
     Route: 065
  115. TENOFOVIR DISOPROXIL [Suspect]
     Active Substance: TENOFOVIR DISOPROXIL
     Dosage: 150 MG, PRN
     Route: 065
  116. TENOFOVIR DISOPROXIL [Suspect]
     Active Substance: TENOFOVIR DISOPROXIL
     Dosage: 245 MILLIGRAM, QD
     Route: 065
  117. TENOFOVIR DISOPROXIL [Suspect]
     Active Substance: TENOFOVIR DISOPROXIL
     Dosage: 245 MILLIGRAM, QD
     Route: 065
  118. LAMIVUDINE [Suspect]
     Active Substance: LAMIVUDINE
     Indication: Product used for unknown indication
     Dosage: 300 MILLIGRAM, QD ,(BID)
  119. LAMIVUDINE [Suspect]
     Active Substance: LAMIVUDINE
     Indication: Product used for unknown indication
     Dosage: 150 MILLIGRAM, BID   (300 MILLIGRAM, QD)
     Route: 065
  120. LAMIVUDINE [Suspect]
     Active Substance: LAMIVUDINE
     Dosage: 150 MILLIGRAM, BID
     Route: 065
  121. LAMIVUDINE [Suspect]
     Active Substance: LAMIVUDINE
     Route: 065
  122. LAMIVUDINE [Suspect]
     Active Substance: LAMIVUDINE
     Route: 065
  123. VIREAD [Suspect]
     Active Substance: TENOFOVIR DISOPROXIL FUMARATE
     Indication: Product used for unknown indication
     Dosage: 245 MILLIGRAM (MG), QD
     Route: 065
  124. VIREAD [Suspect]
     Active Substance: TENOFOVIR DISOPROXIL FUMARATE
     Indication: Product used for unknown indication
     Dosage: 245 MILLIGRAM, QD (245 MG, QD)
     Route: 065
  125. VIREAD [Suspect]
     Active Substance: TENOFOVIR DISOPROXIL FUMARATE
     Dosage: 245 MILLIGRAM, QD (245 MG, QD)
     Route: 065
  126. RAMIPRIL [Suspect]
     Active Substance: RAMIPRIL
     Indication: Product used for unknown indication
  127. RAMIPRIL [Concomitant]
     Active Substance: RAMIPRIL

REACTIONS (3)
  - Brain stem stroke [Fatal]
  - Fall [Fatal]
  - Death [Fatal]

NARRATIVE: CASE EVENT DATE: 20200401
